FAERS Safety Report 18616078 (Version 1)
Quarter: 2020Q4

REPORT INFORMATION
  Report Type: Spontaneous
  Country: AT (occurrence: AT)
  Receive Date: 20201214
  Receipt Date: 20201214
  Transmission Date: 20210114
  Serious: Yes (Other)
  Sender: FDA-Public Use
  Company Number: NVSC2020AT326445

PATIENT
  Sex: Male

DRUGS (2)
  1. DOCETAXEL. [Suspect]
     Active Substance: DOCETAXEL
     Indication: LUNG ADENOCARCINOMA
     Dosage: 75 MG/M2 (75 MG/M2, UNKNOWN/4TH-LINE 75 MG/M2 ONE DOSE)
     Route: 065
     Dates: start: 20160818, end: 20160818
  2. RAMUCIRUMAB [Suspect]
     Active Substance: RAMUCIRUMAB
     Indication: LUNG ADENOCARCINOMA
     Dosage: 10 MG/KG (10 MG/KG, OTHER/4TH-LINE 10MG/KG BODY WEIGHT ONE DOSE)
     Route: 065
     Dates: start: 20160818, end: 20160818

REACTIONS (1)
  - Haemoptysis [Unknown]

NARRATIVE: CASE EVENT DATE: 20160818
